FAERS Safety Report 5300169-0 (Version None)
Quarter: 2007Q2

REPORT INFORMATION
  Report Type: 
  Country: None (occurrence: None)
  Receive Date: 20070411
  Receipt Date: 20070404
  Transmission Date: 20071010
  Serious: No
  Sender: FDA-Public Use
  Company Number: 2007US-06728

PATIENT
  Sex: Male

DRUGS (1)
  1. ISOTRETINOIN [Suspect]

REACTIONS (6)
  - CELLULITIS STAPHYLOCOCCAL [None]
  - CHAPPED LIPS [None]
  - DRUG HYPERSENSITIVITY [None]
  - LIP DRY [None]
  - LIP SWELLING [None]
  - STAPHYLOCOCCAL INFECTION [None]
